FAERS Safety Report 22015324 (Version 3)
Quarter: 2023Q1

REPORT INFORMATION
  Report Type: Spontaneous
  Country: US (occurrence: US)
  Receive Date: 20230221
  Receipt Date: 20230302
  Transmission Date: 20230418
  Serious: No
  Sender: FDA-Public Use
  Company Number: US-PFIZER INC-202300071883

PATIENT
  Age: 32 Year
  Sex: Male

DRUGS (1)
  1. RAPAMUNE [Suspect]
     Active Substance: SIROLIMUS
     Indication: Heart transplant
     Dosage: 2.5 MG, DAILY
     Route: 048

REACTIONS (3)
  - Taste disorder [Unknown]
  - Product taste abnormal [Unknown]
  - Off label use [Unknown]
